FAERS Safety Report 19349952 (Version 1)
Quarter: 2021Q2

REPORT INFORMATION
  Report Type: Report from Study
  Country: AR (occurrence: AR)
  Receive Date: 20210531
  Receipt Date: 20210531
  Transmission Date: 20210717
  Serious: Yes (Other)
  Sender: FDA-Public Use
  Company Number: AR-AMGEN-ARGSL2021032756

PATIENT
  Age: 55 Year
  Sex: Male

DRUGS (1)
  1. VECTIBIX [Suspect]
     Active Substance: PANITUMUMAB
     Indication: COLORECTAL CANCER
     Dosage: UNK, Q2WK (14 DAYS)
     Route: 065
     Dates: start: 20210226, end: 2021

REACTIONS (5)
  - Dry skin [Not Recovered/Not Resolved]
  - Drug ineffective [Unknown]
  - Pyrexia [Unknown]
  - Anticoagulant therapy [Unknown]
  - Anaemia [Unknown]

NARRATIVE: CASE EVENT DATE: 2021
